FAERS Safety Report 5274117-6 (Version None)
Quarter: 2007Q1

REPORT INFORMATION
  Report Type: 
  Country: None (occurrence: None)
  Receive Date: 20070323
  Receipt Date: 20070320
  Transmission Date: 20070707
  Serious: Yes (Other)
  Sender: FDA-Public Use
  Company Number: FR-BRISTOL-MYERS SQUIBB COMPANY-13360201

PATIENT
  Age: 40 Year
  Sex: Female

DRUGS (5)
  1. APROVEL TABS [Suspect]
     Indication: HYPERTENSION
     Route: 048
     Dates: end: 20060418
  2. VIDEX [Suspect]
     Indication: HIV INFECTION
     Route: 048
     Dates: start: 20011001, end: 20050516
  3. EPIVIR [Suspect]
     Indication: HIV INFECTION
     Dates: start: 20011001
  4. VIRAMUNE [Suspect]
     Indication: HIV INFECTION
     Dates: start: 20010101
  5. VIREAD [Suspect]
     Dates: start: 20050316

REACTIONS (6)
  - HEPATIC FIBROSIS [None]
  - HEPATITIS CHOLESTATIC [None]
  - LIPODYSTROPHY ACQUIRED [None]
  - LYMPHOPENIA [None]
  - PORTAL HYPERTENSION [None]
  - VARICES OESOPHAGEAL [None]
